FAERS Safety Report 10785694 (Version 1)
Quarter: 2015Q1

REPORT INFORMATION
  Report Type: Spontaneous
  Country: US (occurrence: US)
  Receive Date: 20150211
  Receipt Date: 20150211
  Transmission Date: 20150721
  Serious: Yes (Other)
  Sender: FDA-Public Use
  Company Number: US-MYLANLABS-2015M1003021

PATIENT

DRUGS (1)
  1. EPIPEN JR [Suspect]
     Active Substance: EPINEPHRINE
     Dosage: 0.15 MG, PRN
     Route: 030
     Dates: start: 20150130, end: 20150130

REACTIONS (1)
  - Device failure [Recovered/Resolved]

NARRATIVE: CASE EVENT DATE: 20150130
